FAERS Safety Report 4827950-6 (Version None)
Quarter: 2005Q4

REPORT INFORMATION
  Report Type: 
  Country: None (occurrence: None)
  Receive Date: 20051115
  Receipt Date: 20050407
  Transmission Date: 20060501
  Serious: Yes (Hospitalization)
  Sender: FDA-Public Use
  Company Number: FR-BOEHRINGER INGELHEIM PHARMACEUTICALS, INC.-2005-BP-08013YA

PATIENT
  Age: 59 Year
  Sex: Male

DRUGS (5)
  1. TAMSULOSIN HCL [Suspect]
     Route: 048
  2. TIMOPTIC [Suspect]
     Indication: GLAUCOMA
     Dosage: 1 DF
     Route: 031
  3. COKENZEN [Suspect]
     Indication: ESSENTIAL HYPERTENSION
     Route: 048
     Dates: end: 20050304
  4. SOPROL [Suspect]
     Indication: ESSENTIAL HYPERTENSION
     Route: 048
  5. BENAZEPRIL HCL [Suspect]
     Indication: ESSENTIAL HYPERTENSION
     Route: 048

REACTIONS (9)
  - ECCHYMOSIS [None]
  - GASTROINTESTINAL HAEMORRHAGE [None]
  - HYPERTENSION [None]
  - IDIOPATHIC THROMBOCYTOPENIC PURPURA [None]
  - MOUTH HAEMORRHAGE [None]
  - ORAL MUCOSAL BLISTERING [None]
  - PETECHIAE [None]
  - PURPURA [None]
  - THROMBOCYTOPENIA [None]
